FAERS Safety Report 10200477 (Version 1)
Quarter: 2014Q2

REPORT INFORMATION
  Report Type: Spontaneous
  Country: NL (occurrence: NL)
  Receive Date: 20140528
  Receipt Date: 20140528
  Transmission Date: 20141212
  Serious: Yes (Hospitalization)
  Sender: FDA-Public Use
  Company Number: NL-AMGEN INC.-NLDSP2014039338

PATIENT
  Age: 66 Year
  Sex: Male

DRUGS (1)
  1. NEULASTA [Suspect]
     Indication: PROPHYLAXIS
     Dosage: 10 MG/ML, EVERY TWO WEEKS, INJVLST WWSP 0.6ML
     Route: 058
     Dates: start: 20140308

REACTIONS (1)
  - Investigation [Unknown]
